APPROVED DRUG PRODUCT: NUPLAZID
Active Ingredient: PIMAVANSERIN TARTRATE
Strength: EQ 34MG BASE
Dosage Form/Route: CAPSULE;ORAL
Application: N210793 | Product #001
Applicant: ACADIA PHARMACEUTICALS INC
Approved: Jun 28, 2018 | RLD: Yes | RS: Yes | Type: RX

PATENTS:
Patent 7659285 | Expires: Aug 24, 2026
Patent 10849891 | Expires: Aug 27, 2038
Patent 11452721 | Expires: Aug 27, 2038
Patent 10449185 | Expires: Aug 27, 2038
Patent 7732615 | Expires: Jun 3, 2028
Patent 10646480 | Expires: Aug 27, 2038
Patent 7601740 | Expires: Apr 29, 2030